FAERS Safety Report 7511091-3 (Version None)
Quarter: 2011Q2

REPORT INFORMATION
  Report Type: 
  Country: None (occurrence: None)
  Receive Date: 20110531
  Receipt Date: 20100902
  Transmission Date: 20111010
  Serious: Yes (Hospitalization)
  Sender: FDA-Public Use
  Company Number: GB-RANBAXY-2010R1-41212

PATIENT
  Age: 76 Year
  Sex: Male

DRUGS (7)
  1. OMEPRAZOLE [Interacting]
     Indication: PRODUCT USED FOR UNKNOWN INDICATION
     Route: 048
  2. RAMIPRIL [Interacting]
     Indication: CORONARY ARTERY DISEASE
     Dosage: UNK
     Route: 048
  3. RANEXA [Interacting]
     Indication: ANGINA PECTORIS
     Dosage: UNK
     Route: 065
     Dates: start: 20091201, end: 20100101
  4. SIMVASTATIN [Suspect]
     Indication: PRODUCT USED FOR UNKNOWN INDICATION
     Dosage: UNK
     Route: 065
     Dates: end: 20100701
  5. AMLODIPINE [Interacting]
     Indication: HYPERTENSION
     Dosage: UNK
     Route: 048
  6. NICORANDIL [Interacting]
     Indication: CORONARY ARTERY DISEASE
     Dosage: UNK
     Route: 048
  7. WARFARIN SODIUM [Interacting]
     Indication: ATRIAL FIBRILLATION
     Dosage: UNK
     Route: 048

REACTIONS (4)
  - DRUG INTERACTION [None]
  - RHABDOMYOLYSIS [None]
  - MYALGIA [None]
  - RENAL FAILURE ACUTE [None]
